FAERS Safety Report 24170763 (Version 1)
Quarter: 2024Q3

REPORT INFORMATION
  Report Type: Report from Study
  Country: ES (occurrence: ES)
  Receive Date: 20240805
  Receipt Date: 20240805
  Transmission Date: 20241016
  Serious: Yes (Hospitalization)
  Sender: MYLAN
  Company Number: None

PATIENT
  Age: 72 Year
  Sex: Male

DRUGS (9)
  1. FENTANYL [Interacting]
     Active Substance: FENTANYL\FENTANYL CITRATE
     Indication: Cancer pain
     Dosage: 1 PATCH PER 72 HOURS (50 MICROGRAMS/HOUR 5 TRANSDERMAL PATCHES)
     Route: 062
     Dates: start: 20231106
  2. NALOXONE HYDROCHLORIDE\OXYCODONE HYDROCHLORIDE [Interacting]
     Active Substance: NALOXONE HYDROCHLORIDE\OXYCODONE HYDROCHLORIDE
     Indication: Cancer pain
     Dosage: 1 DOSAGE FORM, BID (1 TABLET/12HOURS) (56 TABLETS)
     Route: 048
     Dates: start: 20231023
  3. NALOXONE HYDROCHLORIDE\OXYCODONE HYDROCHLORIDE [Interacting]
     Active Substance: NALOXONE HYDROCHLORIDE\OXYCODONE HYDROCHLORIDE
     Indication: Cancer pain
     Dosage: 1 DOSAGE FORM, BID (1 TABLET/12HOURS)
     Route: 048
     Dates: start: 20231110
  4. ACTIQ [Interacting]
     Active Substance: FENTANYL CITRATE
     Indication: Cancer pain
     Dosage: 1 DOSAGE FORM, QD (1 LOZENGE/24HOURS) (30 LOZENGE)
     Route: 048
     Dates: start: 20231106, end: 20231124
  5. BROMAZEPAM [Concomitant]
     Active Substance: BROMAZEPAM
     Dosage: 1 DOSAGE FORM, BID (1 CAPSULE/12HOURS) (30 CAPSULES)
     Route: 048
  6. SODIUM CITRATE;SODIUM LAURYL SULFATE [Concomitant]
     Dosage: 1 ENEMA PER 3 DAYS
     Route: 054
  7. SIMVASTATIN [Concomitant]
     Active Substance: SIMVASTATIN
     Dosage: 1 DOSAGE FORM, QD (1 TABLET/24HOURS) (28 TABLETS)
     Route: 048
  8. LACTULOSE [Concomitant]
     Active Substance: LACTULOSE
     Dosage: 1 SACHET/24HOURS ( ORAL SOLUTION/SUSPENSION 10 SACHETS)
     Route: 048
  9. HODERNAL [Concomitant]
     Dosage: 15 MILLIGRAM, QD (1 VIAL OF 300 ML)
     Route: 048

REACTIONS (2)
  - Serotonin syndrome [Recovered/Resolved]
  - Drug interaction [Unknown]

NARRATIVE: CASE EVENT DATE: 20231107
